FAERS Safety Report 17318563 (Version 2)
Quarter: 2020Q2

REPORT INFORMATION
  Report Type: Spontaneous
  Country: US (occurrence: US)
  Receive Date: 20200124
  Receipt Date: 20200518
  Transmission Date: 20200713
  Serious: Yes (Hospitalization)
  Sender: FDA-Public Use
  Company Number: US-EUSA PHARMA-2014-US-012510

PATIENT
  Age: 20 Year
  Sex: Female

DRUGS (1)
  1. ERWINAZE [Suspect]
     Active Substance: ASPARAGINASE ERWINIA CHRYSANTHEMI
     Indication: T-CELL TYPE ACUTE LEUKAEMIA
     Dosage: 25000 IU/M2, RECEIVED FOUR OF SIX DOSES
     Route: 030

REACTIONS (1)
  - Hyperammonaemia [Unknown]
